FAERS Safety Report 5078683-5 (Version None)
Quarter: 2006Q3

REPORT INFORMATION
  Report Type: 
  Country: None (occurrence: None)
  Receive Date: 20060720
  Receipt Date: 20060607
  Transmission Date: 20061208
  Serious: Yes (Other)
  Sender: FDA-Public Use
  Company Number: HQWYE126612JUN06

PATIENT
  Age: 73 Year
  Sex: Male
  Weight: 93.52 kg

DRUGS (7)
  1. ADVIL PM [Suspect]
     Indication: ARTHRALGIA
     Dosage: 2 CAPLETS ONE TIME, ORAL
     Route: 048
     Dates: start: 20060606, end: 20060606
  2. ADVIL PM [Suspect]
     Indication: INSOMNIA
     Dosage: 2 CAPLETS ONE TIME, ORAL
     Route: 048
     Dates: start: 20060606, end: 20060606
  3. CYCLOSPORINE [Concomitant]
  4. DIOVAN [Concomitant]
  5. FOLIC ACID [Concomitant]
  6. DYNACIRC [Concomitant]
  7. LASIX [Concomitant]

REACTIONS (1)
  - DRUG EFFECT DECREASED [None]
